FAERS Safety Report 8829563 (Version 1)
Quarter: 2012Q4

REPORT INFORMATION
  Report Type: 
  Country: HU (occurrence: HU)
  Receive Date: 20121008
  Receipt Date: 20121008
  Transmission Date: 20130627
  Serious: Yes (Hospitalization)
  Sender: FDA-Public Use
  Company Number: HU-JNJFOC-20121004488

PATIENT
  Age: 64 Year
  Sex: Female

DRUGS (6)
  1. XARELTO [Suspect]
     Indication: HIP SURGERY
     Route: 048
     Dates: start: 20120920, end: 20120920
  2. XARELTO [Suspect]
     Indication: THROMBOSIS PROPHYLAXIS
     Route: 048
     Dates: start: 20120920, end: 20120920
  3. FRAXIPARINE [Concomitant]
     Indication: HIP ARTHROPLASTY
     Dates: start: 20120912, end: 20120919
  4. FRAXIPARINE [Concomitant]
     Indication: HIP ARTHROPLASTY
     Dates: start: 20120921, end: 20120921
  5. FRAXIPARINE [Concomitant]
     Indication: THROMBOSIS PROPHYLAXIS
     Dates: start: 20120912, end: 20120919
  6. FRAXIPARINE [Concomitant]
     Indication: THROMBOSIS PROPHYLAXIS
     Dates: start: 20120921, end: 20120921

REACTIONS (1)
  - Deep vein thrombosis [Recovering/Resolving]
